FAERS Safety Report 7551782-1 (Version None)
Quarter: 2011Q2

REPORT INFORMATION
  Report Type: 
  Country: None (occurrence: None)
  Receive Date: 20110616
  Receipt Date: 20110609
  Transmission Date: 20111010
  Serious: Yes (Hospitalization)
  Sender: FDA-Public Use
  Company Number: B0725283A

PATIENT
  Age: 28 Year
  Sex: Male

DRUGS (7)
  1. EFAVIRENZ [Suspect]
     Indication: HIV INFECTION
     Route: 065
  2. RIFAMPICIN [Concomitant]
     Route: 065
  3. ZIDOVUDINE [Suspect]
     Indication: HIV INFECTION
     Route: 065
  4. ISONIAZID [Concomitant]
     Route: 065
  5. LAMIVUDINE [Suspect]
     Indication: HIV INFECTION
     Route: 065
  6. PYRAZINAMIDE [Concomitant]
     Route: 065
  7. ETHAMBUTOL HYDROCHLORIDE [Concomitant]
     Route: 065

REACTIONS (9)
  - IMMUNE RECONSTITUTION SYNDROME [None]
  - PARALYSIS [None]
  - HEADACHE [None]
  - RESTLESSNESS [None]
  - CONVULSION [None]
  - TUBERCULOMA OF CENTRAL NERVOUS SYSTEM [None]
  - SOMNOLENCE [None]
  - PYREXIA [None]
  - HEMIPARESIS [None]
